FAERS Safety Report 9833450 (Version 4)
Quarter: 2014Q1

REPORT INFORMATION
  Report Type: Spontaneous
  Country: US (occurrence: US)
  Receive Date: 20140122
  Receipt Date: 20140226
  Transmission Date: 20141002
  Serious: No
  Sender: FDA-Public Use
  Company Number: US-009507513-1401USA008138

PATIENT
  Age: 67 Year
  Sex: Female
  Weight: 57.14 kg

DRUGS (23)
  1. PEGINTRON [Suspect]
     Indication: HEPATITIS C
     Dosage: 0.5 ML, ONCE A WEEK, REDIPEN
     Route: 058
     Dates: start: 20140102
  2. PEGINTRON [Suspect]
     Dosage: 0.4 ML, QW
     Route: 058
  3. REBETOL [Suspect]
     Indication: HEPATITIS C
     Dosage: 1 PILL, TWICE A DAY
     Route: 048
     Dates: start: 20140102
  4. SOFOSBUVIR [Concomitant]
     Dosage: 400MG, ONE DAILY
  5. FOLIC ACID [Concomitant]
     Dosage: TWO DAILY
  6. AMLODIPINE [Concomitant]
     Dosage: 10 MG, DAILY
  7. ROPINIROLE HYDROCHLORIDE [Concomitant]
     Dosage: 1 IN A.M. 2 IN P.M.
  8. GABAPENTIN [Concomitant]
     Dosage: 1 A.M., 1 AT LUNCH,2 @HS
  9. NEXIUM [Concomitant]
     Dosage: 40 MG, 1 DAILY
  10. HYDROXYCHLOROQUINE SULFATE [Concomitant]
     Dosage: 1 TWICE DAILY
  11. LEVOTHYROXINE SODIUM [Concomitant]
     Dosage: 100 MICROGRAM, 1 DAILY
  12. OMEPRAZOLE [Concomitant]
     Dosage: 40-1-100 CAP. 1 DAILY AT NIGHT
  13. CALTRATE (CALCIUM CARBONATE) [Concomitant]
     Dosage: 600 MG, 1 TWICE DAILY
  14. CHOLECALCIFEROL [Concomitant]
     Dosage: 800 IU, TWICE DAILY
  15. CALCIUM (UNSPECIFIED) [Concomitant]
     Dosage: 600 MG, TWICE DAILY
  16. VITAMIN E [Concomitant]
     Dosage: 600 MG, 1 DAILY
  17. MAGNESIUM (UNSPECIFIED) [Concomitant]
  18. ZINC (UNSPECIFIED) [Concomitant]
     Dosage: 15 MG, ONE DAILY
  19. BIOTIN [Concomitant]
     Dosage: 500 MG, ONE DAILY
  20. CELEBREX [Concomitant]
     Indication: PAIN
     Dosage: ONE AS NEEDED FOR PAIN
  21. LIALDA [Concomitant]
     Dosage: 1.2 GM. TWO IN A.M. AND TWO IN P.M.
  22. SOVALDI [Concomitant]
  23. RITUXAN [Concomitant]

REACTIONS (4)
  - Burning sensation [Recovered/Resolved]
  - Diarrhoea [Recovered/Resolved]
  - Dyspnoea [Unknown]
  - Dyspnoea [Unknown]
